FAERS Safety Report 10254064 (Version 1)
Quarter: 2014Q2

REPORT INFORMATION
  Report Type: Spontaneous
  Country: US (occurrence: US)
  Receive Date: 20140623
  Receipt Date: 20140623
  Transmission Date: 20141212
  Serious: No
  Sender: FDA-Public Use
  Company Number: US-009507513-1406USA001567

PATIENT
  Sex: Male

DRUGS (1)
  1. ZETIA [Suspect]

REACTIONS (1)
  - Adverse reaction [Unknown]
